FAERS Safety Report 7397207-0 (Version None)
Quarter: 2011Q2

REPORT INFORMATION
  Report Type: 
  Country: None (occurrence: None)
  Receive Date: 20110406
  Receipt Date: 20101110
  Transmission Date: 20111010
  Serious: Yes (Hospitalization, Other)
  Sender: FDA-Public Use
  Company Number: US-BAYER-201030347NA

PATIENT
  Sex: Female
  Weight: 118 kg

DRUGS (10)
  1. OCELLA [Suspect]
     Indication: ORAL CONTRACEPTION
     Dosage: UNK
     Route: 048
     Dates: start: 20080101, end: 20090101
  2. PREVACID [Concomitant]
     Dosage: DAILY DOSE 30 MG
     Route: 048
  3. UNCODEABLE ^UNCLASSIFIABLE^ [Concomitant]
     Route: 048
  4. DOCUSATE SODIUM [Concomitant]
     Dosage: 100 MG, BID
     Route: 048
  5. BENADRYL [Concomitant]
  6. IBUPROFEN [Concomitant]
  7. AUGMENTIN [Concomitant]
  8. UNCODEABLE ^UNCLASSIFIABLE^ [Concomitant]
  9. YASMIN [Suspect]
     Indication: ORAL CONTRACEPTION
     Dosage: UNK
     Route: 048
     Dates: start: 20050101, end: 20070101
  10. CIPROFLOXACIN [Concomitant]

REACTIONS (8)
  - NAUSEA [None]
  - DIARRHOEA [None]
  - CHOLECYSTITIS CHRONIC [None]
  - VOMITING [None]
  - GALLBLADDER DISORDER [None]
  - CHOLELITHIASIS [None]
  - ABDOMINAL PAIN [None]
  - ABDOMINAL PAIN UPPER [None]
